FAERS Safety Report 5727789-3 (Version None)
Quarter: 2008Q2

REPORT INFORMATION
  Report Type: 
  Country: None (occurrence: None)
  Receive Date: 20080505
  Receipt Date: 20080423
  Transmission Date: 20081010
  Serious: Yes (Hospitalization)
  Sender: FDA-Public Use
  Company Number: JP-PFIZER INC-2008020404

PATIENT
  Sex: Female

DRUGS (10)
  1. VFEND [Suspect]
     Indication: FUNGAL INFECTION
     Route: 042
     Dates: start: 20080219, end: 20080219
  2. VFEND [Suspect]
     Route: 042
     Dates: start: 20080220, end: 20080225
  3. MEROPEN [Concomitant]
     Indication: BACTERIAL INFECTION
     Route: 042
     Dates: start: 20080208, end: 20080224
  4. VANCOMYCIN HYDROCHLORIDE [Concomitant]
     Indication: BACTERIAL INFECTION
     Route: 042
     Dates: start: 20080208, end: 20080224
  5. MAXIPIME [Concomitant]
     Route: 042
     Dates: start: 20080129, end: 20080306
  6. HABEKACIN [Concomitant]
     Route: 042
     Dates: start: 20080201, end: 20080208
  7. HABEKACIN [Concomitant]
     Dosage: DAILY DOSE:75MG
     Route: 042
     Dates: start: 20080225, end: 20080226
  8. LANSOPRAZOLE [Concomitant]
     Route: 048
     Dates: start: 20071204, end: 20080307
  9. MUCOSTA [Concomitant]
     Route: 048
     Dates: start: 20071205, end: 20080307
  10. ITRACONAZOLE [Concomitant]
     Route: 048
     Dates: start: 20080218, end: 20080219

REACTIONS (6)
  - ARTHRALGIA [None]
  - BLOOD BILIRUBIN INCREASED [None]
  - DISSEMINATED INTRAVASCULAR COAGULATION [None]
  - GAMMA-GLUTAMYLTRANSFERASE INCREASED [None]
  - HEPATIC FUNCTION ABNORMAL [None]
  - PYREXIA [None]
